FAERS Safety Report 7700584-1 (Version None)
Quarter: 2011Q3

REPORT INFORMATION
  Report Type: 
  Country: None (occurrence: None)
  Receive Date: 20110822
  Receipt Date: 20110816
  Transmission Date: 20111222
  Serious: Yes (Life-Threatening, Other)
  Sender: FDA-Public Use
  Company Number: GB-AMGEN-GBRSP2011042147

PATIENT
  Age: 53 Year
  Sex: Female

DRUGS (3)
  1. DICLOFENAC SODIUM [Concomitant]
     Dosage: UNK, AS NEEDED
  2. ENBREL [Suspect]
     Indication: PSORIATIC ARTHROPATHY
     Dosage: 50 MG, WEEKLY
     Route: 058
     Dates: start: 20110501, end: 20110501
  3. ACETAMINOPHEN [Concomitant]
     Dosage: UNK, AS NEEDED

REACTIONS (1)
  - SUICIDAL IDEATION [None]
